FAERS Safety Report 24532012 (Version 1)
Quarter: 2024Q4

REPORT INFORMATION
  Report Type: Report from Study
  Country: IN (occurrence: IN)
  Receive Date: 20241022
  Receipt Date: 20241022
  Transmission Date: 20250115
  Serious: Yes (Death)
  Sender: ROCHE
  Company Number: IN-ROCHE-10000110805

PATIENT
  Age: 81 Year
  Sex: Male
  Weight: 58 kg

DRUGS (1)
  1. POLIVY [Suspect]
     Active Substance: POLATUZUMAB VEDOTIN-PIIQ
     Indication: Diffuse large B-cell lymphoma
     Route: 042
     Dates: start: 20240916

REACTIONS (1)
  - Death [Fatal]
